FAERS Safety Report 15906240 (Version 2)
Quarter: 2019Q1

REPORT INFORMATION
  Report Type: Report from Study
  Country: US (occurrence: US)
  Receive Date: 20190204
  Receipt Date: 20190308
  Transmission Date: 20190417
  Serious: No
  Sender: FDA-Public Use
  Company Number: US-009507513-1901USA009827

PATIENT
  Age: 51 Year
  Sex: Male

DRUGS (2)
  1. KEYTRUDA [Suspect]
     Active Substance: PEMBROLIZUMAB
     Indication: CEREBRAL DISORDER
  2. KEYTRUDA [Suspect]
     Active Substance: PEMBROLIZUMAB
     Indication: PRIMARY PULMONARY MELANOMA
     Dosage: UNK
     Dates: start: 20160824, end: 20180808

REACTIONS (4)
  - Rash [Not Recovered/Not Resolved]
  - Decreased interest [Not Recovered/Not Resolved]
  - Depression [Not Recovered/Not Resolved]
  - Product use in unapproved indication [Unknown]

NARRATIVE: CASE EVENT DATE: 20160824
